FAERS Safety Report 10980047 (Version 1)
Quarter: 2015Q2

REPORT INFORMATION
  Report Type: Spontaneous
  Country: US (occurrence: US)
  Receive Date: 20150402
  Receipt Date: 20150402
  Transmission Date: 20150821
  Serious: Yes (Hospitalization)
  Sender: FDA-Public Use
  Company Number: US-JNJFOC-20150106732

PATIENT
  Age: 65 Year
  Sex: Male
  Weight: 147 kg

DRUGS (13)
  1. DECITABINE. [Suspect]
     Active Substance: DECITABINE
     Indication: MYELODYSPLASTIC SYNDROME
  2. VITAMIN D [Concomitant]
     Active Substance: CHOLECALCIFEROL
  3. C VITAMIN [Concomitant]
  4. CELEXA [Concomitant]
     Active Substance: CITALOPRAM HYDROBROMIDE
  5. LISINOPRIL. [Concomitant]
     Active Substance: LISINOPRIL
  6. FLUTICASONE PROPIONATE/ SALMETEROL [Concomitant]
  7. FISH OIL [Concomitant]
     Active Substance: FISH OIL
  8. IMBRUVICA [Suspect]
     Active Substance: IBRUTINIB
     Indication: CHRONIC LYMPHOCYTIC LEUKAEMIA
     Route: 048
     Dates: start: 20141016, end: 20150201
  9. POTASSIUM [Concomitant]
     Active Substance: POTASSIUM
  10. IMBRUVICA [Suspect]
     Active Substance: IBRUTINIB
     Indication: CHRONIC LYMPHOCYTIC LEUKAEMIA
     Route: 048
     Dates: start: 20141020
  11. NEXIUM [Concomitant]
     Active Substance: ESOMEPRAZOLE MAGNESIUM
  12. ASPIRIN. [Concomitant]
     Active Substance: ASPIRIN
  13. LIPITOR [Concomitant]
     Active Substance: ATORVASTATIN CALCIUM

REACTIONS (4)
  - Myelodysplastic syndrome [Not Recovered/Not Resolved]
  - Platelet count decreased [Recovering/Resolving]
  - Anaemia [Recovering/Resolving]
  - Epistaxis [Unknown]

NARRATIVE: CASE EVENT DATE: 2014
